FAERS Safety Report 9052665 (Version 6)
Quarter: 2014Q3

REPORT INFORMATION
  Report Type: Report from Study
  Country: US (occurrence: US)
  Receive Date: 20130207
  Receipt Date: 20140930
  Transmission Date: 20150326
  Serious: Yes (Life-Threatening, Hospitalization, Disabling, Other)
  Sender: FDA-Public Use
  Company Number: US-UCBSA-077051

PATIENT
  Age: 45 Year
  Sex: Male
  Weight: 96.4 kg

DRUGS (18)
  1. ULTRACET [Concomitant]
     Active Substance: ACETAMINOPHEN\TRAMADOL HYDROCHLORIDE
     Indication: ARTHRALGIA
     Dosage: 37.5/ 325 MG PRN
     Route: 048
     Dates: start: 200605
  2. FOLIC ACID. [Concomitant]
     Active Substance: FOLIC ACID
     Indication: PROPHYLAXIS
     Dosage: 1 G, ONCE DAILY (QD)
     Route: 048
     Dates: start: 20120606, end: 20121113
  3. HYDROCODONE [Concomitant]
     Active Substance: HYDROCODONE
     Indication: ARTHRALGIA
     Dosage: 5/325 MG
     Route: 048
     Dates: start: 201112
  4. PNEUMOCOCCAL VACCINE [Concomitant]
     Active Substance: PNEUMOCOCCAL VACCINE POLYVALENT
     Indication: PROPHYLAXIS
     Dosage: 0.5 CC ONCE
     Route: 030
     Dates: start: 20121024, end: 20121024
  5. TORADOL [Concomitant]
     Active Substance: KETOROLAC TROMETHAMINE
     Indication: JOINT EFFUSION
     Dosage: ONCE
     Route: 030
     Dates: start: 20120820, end: 20120820
  6. CERTOLIZUMAB PEGOL RA [Suspect]
     Active Substance: CERTOLIZUMAB PEGOL
     Indication: RHEUMATOID ARTHRITIS
     Dosage: 200 MG (17 DOSES),  400 MG (2 DOSES)
     Route: 058
     Dates: start: 20120611, end: 20130121
  7. FOLIC ACID. [Concomitant]
     Active Substance: FOLIC ACID
     Dosage: 2 G, ONCE DAILY (QD)
     Route: 048
     Dates: start: 201211
  8. NABUMETONE. [Concomitant]
     Active Substance: NABUMETONE
     Indication: ARTHRALGIA
     Dosage: 750 MG, 2X/DAY (BID)
     Route: 048
     Dates: start: 201205
  9. ALPRAZOLAM. [Concomitant]
     Active Substance: ALPRAZOLAM
     Indication: ANXIETY
     Dosage: 1 MG, ONCE DAILY (QD)
     Route: 048
     Dates: start: 20121210
  10. ASPIRIN. [Concomitant]
     Active Substance: ASPIRIN
     Indication: CARDIOVASCULAR EVENT PROPHYLAXIS
     Dosage: 81 MG, ONCE DAILY (QD)
     Route: 048
     Dates: start: 2006
  11. SIMVASTATIN. [Concomitant]
     Active Substance: SIMVASTATIN
     Indication: HYPERCHOLESTEROLAEMIA
     Dosage: QHS
     Route: 048
     Dates: start: 2006
  12. HYDROCODONE [Concomitant]
     Active Substance: HYDROCODONE
     Dosage: 5/500 MG
     Route: 048
     Dates: start: 201112, end: 20120723
  13. PAROXETINE [Concomitant]
     Active Substance: PAROXETINE\PAROXETINE HYDROCHLORIDE
     Indication: ANXIETY
     Dosage: 20 MG, ONCE DAILY (QD)
     Route: 048
  14. DEPO-MEDROL [Concomitant]
     Active Substance: METHYLPREDNISOLONE ACETATE
     Indication: JOINT EFFUSION
     Dosage: ONCE INJECTION
     Dates: start: 20120723, end: 20120723
  15. VALTREX [Concomitant]
     Active Substance: VALACYCLOVIR HYDROCHLORIDE
     Indication: EYE IRRITATION
     Dosage: 500 MG, AS NEEDED (PRN)
     Route: 048
     Dates: start: 200605
  16. METHOTREXATE [Concomitant]
     Active Substance: METHOTREXATE
     Indication: RHEUMATOID ARTHRITIS
     Dosage: 25 MG, ONCE DAILY (QD)
     Route: 048
     Dates: start: 20120611
  17. INFLUENZA VACCINE [Concomitant]
     Active Substance: INFLUENZA VIRUS VACCINE
     Indication: ANTIVIRAL PROPHYLAXIS
     Dosage: ONCE
     Route: 030
     Dates: start: 20121024, end: 20121024
  18. BENAZEPRIL [Concomitant]
     Active Substance: BENAZEPRIL\BENAZEPRIL HYDROCHLORIDE
     Indication: HYPERTENSION
     Dosage: 40 MG, ONCE DAILY (QD)
     Route: 048
     Dates: start: 2006

REACTIONS (7)
  - Sepsis [Recovered/Resolved]
  - Pulmonary embolism [Recovered/Resolved]
  - Respiratory failure [Recovered/Resolved]
  - Localised infection [Recovered/Resolved]
  - Pneumonia [Recovered/Resolved]
  - Leg amputation [Recovered/Resolved]
  - Renal failure [Recovered/Resolved]

NARRATIVE: CASE EVENT DATE: 20130120
